FAERS Safety Report 9740419 (Version 2)
Quarter: 2014Q1

REPORT INFORMATION
  Report Type: Spontaneous
  Country: CH (occurrence: CH)
  Receive Date: 20131209
  Receipt Date: 20140127
  Transmission Date: 20141002
  Serious: Yes (Other)
  Sender: FDA-Public Use
  Company Number: CH-BAXTER-2013BAX047943

PATIENT
  Age: 67 Year
  Sex: Female

DRUGS (1)
  1. TISSEEL [Suspect]
     Indication: SURGERY
     Route: 065
     Dates: start: 20131128

REACTIONS (2)
  - Drug ineffective [Unknown]
  - Poor quality drug administered [Unknown]
